FAERS Safety Report 12299833 (Version 1)
Quarter: 2016Q2

REPORT INFORMATION
  Report Type: Spontaneous
  Country: TH (occurrence: TH)
  Receive Date: 20160425
  Receipt Date: 20160425
  Transmission Date: 20160815
  Serious: Yes (Other)
  Sender: FDA-Public Use
  Company Number: TH-SA-2016SA078428

PATIENT
  Age: 70 Year
  Sex: Female

DRUGS (5)
  1. LEFLUNOMIDE. [Suspect]
     Active Substance: LEFLUNOMIDE
     Route: 065
  2. TOFACITINIB CITRATE [Concomitant]
     Active Substance: TOFACITINIB CITRATE
  3. SULFADIAZINE. [Concomitant]
     Active Substance: SULFADIAZINE
  4. PREDNISOLONE. [Concomitant]
     Active Substance: PREDNISOLONE
  5. METHOTREXATE [Concomitant]
     Active Substance: METHOTREXATE

REACTIONS (2)
  - Diverticulitis [Unknown]
  - Acute abdomen [Unknown]
